FAERS Safety Report 13219745 (Version 3)
Quarter: 2017Q1

REPORT INFORMATION
  Report Type: Report from Study
  Country: US (occurrence: US)
  Receive Date: 20170210
  Receipt Date: 20170321
  Transmission Date: 20170428
  Serious: No
  Sender: FDA-Public Use
  Company Number: US-AMGEN-USASL2017021235

PATIENT
  Age: 56 Year
  Sex: Female

DRUGS (4)
  1. PREDNISONE. [Concomitant]
     Active Substance: PREDNISONE
     Dosage: UNK
  2. PREDNISONE. [Concomitant]
     Active Substance: PREDNISONE
     Dosage: 10 MG, QD
  3. ENBREL [Suspect]
     Active Substance: ETANERCEPT
     Dosage: 50 UNK, UNK
     Route: 065
     Dates: start: 20170306
  4. ENBREL [Suspect]
     Active Substance: ETANERCEPT
     Indication: RHEUMATOID ARTHRITIS
     Dosage: 50 MG, QWK
     Route: 065

REACTIONS (2)
  - Bronchitis [Recovered/Resolved]
  - Nasopharyngitis [Recovered/Resolved]
